FAERS Safety Report 5934559-X (Version None)
Quarter: 2008Q4

REPORT INFORMATION
  Report Type: 
  Country: None (occurrence: None)
  Receive Date: 20081027
  Receipt Date: 20081015
  Transmission Date: 20090506
  Serious: No
  Sender: FDA-Public Use
  Company Number: US024282

PATIENT
  Sex: Male

DRUGS (2)
  1. FENTORA [Suspect]
     Dosage: 600 UG BUCCAL
     Route: 002
     Dates: end: 20080819
  2. FENTORA [Suspect]
     Dosage: 00 UG SUBLINGUAL
     Route: 060

REACTIONS (4)
  - DRUG EFFECT DECREASED [None]
  - MEDICATION ERROR [None]
  - PRODUCT QUALITY ISSUE [None]
  - STOMATITIS [None]
